APPROVED DRUG PRODUCT: FORTESTA
Active Ingredient: TESTOSTERONE
Strength: 10MG/0.5GM ACTUATION **Federal Register determination that product was not discontinued or withdrawn for safety or effectiveness reasons**
Dosage Form/Route: GEL, METERED;TRANSDERMAL
Application: N021463 | Product #001
Applicant: ENDO OPERATIONS LTD
Approved: Dec 29, 2010 | RLD: Yes | RS: No | Type: DISCN